APPROVED DRUG PRODUCT: VENTOLIN ROTACAPS
Active Ingredient: ALBUTEROL SULFATE
Strength: EQ 0.2MG BASE
Dosage Form/Route: CAPSULE;INHALATION
Application: N019489 | Product #001
Applicant: GLAXOSMITHKLINE
Approved: May 4, 1988 | RLD: No | RS: No | Type: DISCN